FAERS Safety Report 11573993 (Version 10)
Quarter: 2016Q2

REPORT INFORMATION
  Report Type: Report from Study
  Country: CA (occurrence: CA)
  Receive Date: 20150930
  Receipt Date: 20160523
  Transmission Date: 20160815
  Serious: Yes (Hospitalization, Other)
  Sender: FDA-Public Use
  Company Number: CA-ROCHE-1608816

PATIENT
  Age: 73 Year
  Sex: Male

DRUGS (9)
  1. PREDNISONE. [Concomitant]
     Active Substance: PREDNISONE
  2. RISEDRONATE [Concomitant]
     Active Substance: RISEDRONATE SODIUM
  3. RAPAFLO [Concomitant]
     Active Substance: SILODOSIN
  4. PLAQUENIL [Concomitant]
     Active Substance: HYDROXYCHLOROQUINE SULFATE
  5. ACTEMRA [Suspect]
     Active Substance: TOCILIZUMAB
     Dosage: FIRST RPAP DOSE
     Route: 058
     Dates: start: 20150703, end: 20150925
  6. PANTOLOC [Concomitant]
     Active Substance: PANTOPRAZOLE SODIUM
  7. DUTASTERIDE. [Concomitant]
     Active Substance: DUTASTERIDE
  8. ACETYLSALICYLIC ACID [Concomitant]
     Active Substance: ASPIRIN
  9. ACTEMRA [Suspect]
     Active Substance: TOCILIZUMAB
     Indication: RHEUMATOID ARTHRITIS
     Route: 058
     Dates: start: 20141120

REACTIONS (27)
  - Rib fracture [Unknown]
  - Pain in extremity [Recovering/Resolving]
  - Pain in extremity [Unknown]
  - Haemoglobin decreased [Unknown]
  - Haematocrit decreased [Unknown]
  - Dyspnoea [Not Recovered/Not Resolved]
  - Bradycardia [Unknown]
  - Wrist deformity [Not Recovered/Not Resolved]
  - Myalgia [Not Recovered/Not Resolved]
  - Blood pressure diastolic decreased [Not Recovered/Not Resolved]
  - Red blood cell count decreased [Unknown]
  - Groin pain [Recovered/Resolved]
  - Oedema [Not Recovered/Not Resolved]
  - Skin hypertrophy [Not Recovered/Not Resolved]
  - Myalgia [Unknown]
  - Spinal fracture [Not Recovered/Not Resolved]
  - Seizure [Unknown]
  - Drug effect decreased [Unknown]
  - Malignant melanoma [Unknown]
  - Blood pressure decreased [Unknown]
  - Fall [Unknown]
  - Gait disturbance [Unknown]
  - Pain [Not Recovered/Not Resolved]
  - Mean cell volume increased [Unknown]
  - Peripheral swelling [Not Recovered/Not Resolved]
  - Arthralgia [Unknown]
  - Contusion [Unknown]

NARRATIVE: CASE EVENT DATE: 2015
